FAERS Safety Report 19709272 (Version 1)
Quarter: 2021Q3

REPORT INFORMATION
  Report Type: Spontaneous
  Country: IT (occurrence: IT)
  Receive Date: 20210817
  Receipt Date: 20210817
  Transmission Date: 20211014
  Serious: Yes (Hospitalization)
  Sender: FDA-Public Use
  Company Number: IT-MYLANLABS-2021M1052146

PATIENT
  Age: 42 Year
  Sex: Male

DRUGS (3)
  1. SIMVASTATIN. [Suspect]
     Active Substance: SIMVASTATIN
     Indication: PRODUCT USED FOR UNKNOWN INDICATION
     Dosage: 20 MILLIGRAM, QD
     Dates: start: 199604
  2. ASPIRIN                            /00002701/ [Concomitant]
     Active Substance: ASPIRIN
     Dosage: 100 MILLIGRAM, QD
     Dates: start: 199401
  3. ATENOLOL. [Concomitant]
     Active Substance: ATENOLOL
     Dosage: 100 MILLIGRAM, QD
     Dates: start: 199401

REACTIONS (1)
  - Polymyositis [Recovered/Resolved]

NARRATIVE: CASE EVENT DATE: 199607
